FAERS Safety Report 7044072-7 (Version None)
Quarter: 2010Q4

REPORT INFORMATION
  Report Type: 
  Country: None (occurrence: None)
  Receive Date: 20101013
  Receipt Date: 20101005
  Transmission Date: 20110411
  Serious: Yes (Other)
  Sender: FDA-Public Use
  Company Number: AU-PFIZER INC-2010125707

PATIENT
  Age: 38 Year
  Sex: Male

DRUGS (1)
  1. CHAMPIX [Suspect]
     Dosage: UNK
     Route: 048
     Dates: end: 20101003

REACTIONS (7)
  - AGITATION [None]
  - BLEPHAROSPASM [None]
  - DISTURBANCE IN ATTENTION [None]
  - EYE MOVEMENT DISORDER [None]
  - FLAT AFFECT [None]
  - FRUSTRATION [None]
  - SUICIDAL IDEATION [None]
